FAERS Safety Report 12452342 (Version 1)
Quarter: 2016Q2

REPORT INFORMATION
  Report Type: Spontaneous
  Country: US (occurrence: US)
  Receive Date: 20160609
  Receipt Date: 20160609
  Transmission Date: 20160815
  Serious: Yes (Hospitalization)
  Sender: FDA-Public Use
  Company Number: US-ASTELLAS-2015US042617

PATIENT
  Sex: Female

DRUGS (2)
  1. PROGRAF [Suspect]
     Active Substance: TACROLIMUS\TACROLIMUS ANHYDROUS
     Indication: TRANSPLANT
     Dosage: 3 CAPSUES EVERY AM AND 2 CAPSULES EVERY PM
     Route: 048
     Dates: start: 201508
  2. MYFORTIC [Suspect]
     Active Substance: MYCOPHENOLATE SODIUM
     Indication: TRANSPLANT
     Dosage: 2 TABLETS EVERY AM AND 1 TABLET EVERY PM
     Route: 048
     Dates: start: 201507

REACTIONS (1)
  - Pneumonia [Unknown]
